FAERS Safety Report 17791523 (Version 1)
Quarter: 2020Q2

REPORT INFORMATION
  Report Type: Spontaneous
  Country: CN (occurrence: CN)
  Receive Date: 20200515
  Receipt Date: 20200515
  Transmission Date: 20200714
  Serious: Yes (Hospitalization, Other)
  Sender: FDA-Public Use
  Company Number: NVSC2020CN128898

PATIENT
  Age: 67 Year
  Sex: Male
  Weight: 62 kg

DRUGS (1)
  1. TEGRETOL [Suspect]
     Active Substance: CARBAMAZEPINE
     Indication: CEREBRAL INFARCTION
     Dosage: 1 DF, QD
     Route: 048
     Dates: start: 20200415, end: 20200426

REACTIONS (5)
  - Rash [Recovering/Resolving]
  - Mouth ulceration [Recovering/Resolving]
  - Pruritus [Recovering/Resolving]
  - Pyrexia [Recovering/Resolving]
  - Oropharyngeal pain [Recovering/Resolving]

NARRATIVE: CASE EVENT DATE: 20200424
